FAERS Safety Report 25446613 (Version 1)
Quarter: 2025Q2

REPORT INFORMATION
  Report Type: Spontaneous
  Country: US (occurrence: US)
  Receive Date: 20250617
  Receipt Date: 20250617
  Transmission Date: 20250717
  Serious: No
  Sender: UCB
  Company Number: US-UCBSA-2025026847

PATIENT
  Sex: Female

DRUGS (1)
  1. BIMZELX [Suspect]
     Active Substance: BIMEKIZUMAB-BKZX
     Indication: Psoriasis
     Route: 065
     Dates: start: 20250430

REACTIONS (4)
  - Incorrect dose administered [Unknown]
  - Device malfunction [Unknown]
  - Product leakage [Unknown]
  - Device defective [Unknown]
